FAERS Safety Report 6666828-2 (Version None)
Quarter: 2010Q2

REPORT INFORMATION
  Report Type: 
  Country: None (occurrence: None)
  Receive Date: 20100401
  Receipt Date: 20100401
  Transmission Date: 20101027
  Serious: No
  Sender: FDA-Public Use
  Company Number: None

PATIENT
  Age: 62 Year
  Sex: Male
  Weight: 142 kg

DRUGS (1)
  1. EZETIMIBE/SIMVASTATIN [Suspect]
     Indication: HYPERLIPIDAEMIA
     Dosage: 10/10 MG EVERY DAY PO
     Route: 048
     Dates: start: 20100305, end: 20100323

REACTIONS (4)
  - HEADACHE [None]
  - HYPERSENSITIVITY [None]
  - MYALGIA [None]
  - PAIN IN EXTREMITY [None]
